FAERS Safety Report 11989490 (Version 3)
Quarter: 2016Q1

REPORT INFORMATION
  Report Type: Report from Study
  Country: US (occurrence: US)
  Receive Date: 20160202
  Receipt Date: 20160328
  Transmission Date: 20160526
  Serious: No
  Sender: FDA-Public Use
  Company Number: US-AMGEN-USASL2016007516

PATIENT
  Age: 55 Year
  Sex: Male

DRUGS (1)
  1. ENBREL [Suspect]
     Active Substance: ETANERCEPT
     Indication: RHEUMATOID ARTHRITIS
     Dosage: 50 MG, WEEKLY
     Route: 065
     Dates: start: 201511

REACTIONS (8)
  - Peripheral swelling [Unknown]
  - Erythema [Unknown]
  - Injection site erythema [Unknown]
  - Drug effect decreased [Unknown]
  - Joint swelling [Unknown]
  - Arthralgia [Unknown]
  - Injection site bruising [Unknown]
  - Swelling [Unknown]
